FAERS Safety Report 4882889-5 (Version None)
Quarter: 2006Q1

REPORT INFORMATION
  Report Type: 
  Country: None (occurrence: None)
  Receive Date: 20060118
  Receipt Date: 20051206
  Transmission Date: 20060701
  Serious: Yes (Hospitalization, Other)
  Sender: FDA-Public Use
  Company Number: JP-SP-2005-02715

PATIENT
  Age: 71 Year
  Sex: Male

DRUGS (4)
  1. IMMUCYST [Suspect]
     Indication: BLADDER CANCER
     Dosage: TOTAL DOSE = 486 MG (6 TIMES)
     Route: 043
     Dates: start: 20051014, end: 20051122
  2. IMMUCYST [Suspect]
     Dosage: TOTAL DOSE = 486 MG (6 TIMES)
     Route: 043
     Dates: start: 20051014, end: 20051122
  3. IMMUCYST [Suspect]
     Dosage: TOTAL DOSE = 486 MG (6 TIMES)
     Route: 043
     Dates: start: 20051014, end: 20051122
  4. IMMUCYST [Suspect]
     Dosage: TOTAL DOSE = 486 MG (6 TIMES)
     Route: 043
     Dates: start: 20051014, end: 20051122

REACTIONS (10)
  - ABDOMINAL DISTENSION [None]
  - ABDOMINAL PAIN UPPER [None]
  - CONSTIPATION [None]
  - DYSURIA [None]
  - INSOMNIA [None]
  - POLLAKIURIA [None]
  - PYREXIA [None]
  - URETHRAL PAIN [None]
  - URETHRITIS [None]
  - URINARY TRACT INFECTION [None]
